FAERS Safety Report 6717855-8 (Version None)
Quarter: 2010Q2

REPORT INFORMATION
  Report Type: 
  Country: None (occurrence: None)
  Receive Date: 20100510
  Receipt Date: 20100401
  Transmission Date: 20101027
  Serious: Yes (Life-Threatening, Other)
  Sender: FDA-Public Use
  Company Number: US-MERCK-1005USA00117

PATIENT
  Age: 68 Year
  Sex: Male

DRUGS (1)
  1. HYDRODIURIL [Suspect]
     Route: 048

REACTIONS (2)
  - HEMIPLEGIA [None]
  - HYPOKALAEMIA [None]
